FAERS Safety Report 12073425 (Version 3)
Quarter: 2016Q2

REPORT INFORMATION
  Report Type: Spontaneous
  Country: US (occurrence: US)
  Receive Date: 20160212
  Receipt Date: 20160422
  Transmission Date: 20160815
  Serious: Yes (Other)
  Sender: FDA-Public Use
  Company Number: US-INDIVIOR LIMITED-INDV-087853-2016

PATIENT
  Age: 55 Year
  Sex: Female

DRUGS (6)
  1. SUBOXONE [Suspect]
     Active Substance: BUPRENORPHINE HYDROCHLORIDE\NALOXONE HYDROCHLORIDE
     Dosage: 6 MG, DAILY
     Route: 060
     Dates: start: 201507, end: 201601
  2. METHADONE [Suspect]
     Active Substance: METHADONE HYDROCHLORIDE
     Indication: DRUG DEPENDENCE
     Dosage: UNK, FOR 5 YEARS
     Route: 065
  3. ZOLOFT P [Concomitant]
     Indication: DEPRESSION
     Dosage: UNK, DAILY
     Route: 048
     Dates: start: 1996
  4. SUBOXONE [Suspect]
     Active Substance: BUPRENORPHINE HYDROCHLORIDE\NALOXONE HYDROCHLORIDE
     Indication: DRUG DEPENDENCE
     Dosage: 4 MG, DAILY
     Route: 060
     Dates: start: 201507, end: 201601
  5. SUBOXONE [Suspect]
     Active Substance: BUPRENORPHINE HYDROCHLORIDE\NALOXONE HYDROCHLORIDE
     Dosage: VARIOUS TAPERED DOSES DOWN TO 2.5 MG DAILY
     Route: 060
     Dates: start: 201507, end: 201601
  6. SUBOXONE [Suspect]
     Active Substance: BUPRENORPHINE HYDROCHLORIDE\NALOXONE HYDROCHLORIDE
     Dosage: 3 MG, DAILY
     Route: 060
     Dates: end: 201601

REACTIONS (15)
  - Depression [Not Recovered/Not Resolved]
  - Palpitations [Not Recovered/Not Resolved]
  - Suicidal ideation [Unknown]
  - Hallucination, visual [Not Recovered/Not Resolved]
  - Pain [Not Recovered/Not Resolved]
  - Cholecystitis [Unknown]
  - Visual impairment [Unknown]
  - Hyperhidrosis [Unknown]
  - Product preparation error [Recovered/Resolved]
  - Feeling abnormal [Not Recovered/Not Resolved]
  - Gallbladder pain [Unknown]
  - Dizziness [Not Recovered/Not Resolved]
  - Intentional underdose [Recovered/Resolved]
  - Cold sweat [Not Recovered/Not Resolved]
  - Anxiety [Unknown]

NARRATIVE: CASE EVENT DATE: 2015
